FAERS Safety Report 22013777 (Version 1)
Quarter: 2023Q1

REPORT INFORMATION
  Report Type: Report from Study
  Country: LU (occurrence: LU)
  Receive Date: 20230221
  Receipt Date: 20230221
  Transmission Date: 20230417
  Serious: Yes (Death, Other)
  Sender: FDA-Public Use
  Company Number: LU-ABBVIE-4313219

PATIENT
  Age: 78 Year
  Sex: Female

DRUGS (10)
  1. CARBIDOPA\LEVODOPA [Suspect]
     Active Substance: CARBIDOPA\LEVODOPA
     Indication: Parkinson^s disease
     Route: 050
     Dates: start: 20190430
  2. CARBIDOPA\LEVODOPA [Suspect]
     Active Substance: CARBIDOPA\LEVODOPA
     Dosage: MD: 4.0 ML, CD: 2.9 ML/H, ED: 1.0 ML, NCD: 1.7 ML/H DURING 16 HOURS
     Route: 050
     Dates: start: 20220428, end: 20230215
  3. BENSERAZIDE\LEVODOPA [Concomitant]
     Active Substance: BENSERAZIDE\LEVODOPA
     Indication: Product used for unknown indication
     Dosage: 0.5 UNKNOWN
  4. BENSERAZIDE\LEVODOPA [Concomitant]
     Active Substance: BENSERAZIDE\LEVODOPA
     Indication: Product used for unknown indication
     Dosage: AT MORNING, AT NOON, AT EVENING, 250 UNKNOWN UNIT
  5. BENSERAZIDE\LEVODOPA [Concomitant]
     Active Substance: BENSERAZIDE\LEVODOPA
     Indication: Product used for unknown indication
     Dosage: AT 07.00
  6. CONTAN [Concomitant]
     Indication: Product used for unknown indication
     Dosage: AT MORNING, AT NOON, AT EVENING?FORM STRENGTH 200 ?FORM STRENGTH UNIT UNKNOWN
  7. AMANTADINE SULFATE [Concomitant]
     Active Substance: AMANTADINE SULFATE
     Indication: Product used for unknown indication
     Dosage: IN THE MORNING, AT NOON, 100 UNKNOWN UNIT
  8. BISOPROLOL FUMARATE [Concomitant]
     Active Substance: BISOPROLOL FUMARATE
     Indication: Product used for unknown indication
     Dosage: 2.5 MG, 0.5 UNKNOWN, IN THE MORNING AND IN THE EVENING
  9. BISOPROLOL FUMARATE [Concomitant]
     Active Substance: BISOPROLOL FUMARATE
     Indication: Product used for unknown indication
     Dosage: AT MORNING, AT NOON, AT EVENING, 200 UNKNOWN UNIT
  10. BENSERAZIDE\LEVODOPA [Concomitant]
     Active Substance: BENSERAZIDE\LEVODOPA
     Indication: Product used for unknown indication
     Dosage: 1 UNKNOWN, IN THE EVENING

REACTIONS (1)
  - Death [Fatal]

NARRATIVE: CASE EVENT DATE: 20230215
